FAERS Safety Report 5630820-7 (Version None)
Quarter: 2008Q1

REPORT INFORMATION
  Report Type: 
  Country: None (occurrence: None)
  Receive Date: 20080219
  Receipt Date: 20080205
  Transmission Date: 20080703
  Serious: Yes (Other)
  Sender: FDA-Public Use
  Company Number: FR-RANBAXY-2008RR-12905

PATIENT

DRUGS (16)
  1. PARACETAMOL RPG 500MG COMPRIME [Suspect]
     Indication: PAIN
     Dosage: 2 G, QD
     Route: 048
  2. PARACETAMOL RPG 500MG COMPRIME [Suspect]
     Dosage: 3 G, QD
  3. FLUINDIONE [Suspect]
     Indication: THROMBOPHLEBITIS
     Dosage: 25 MG, UNK
  4. FLUINDIONE [Suspect]
     Indication: PULMONARY EMBOLISM
     Dosage: 30 MG, UNK
  5. CALCIPARINE [Concomitant]
     Dosage: 45000 UL, QD
  6. CALCIPARINE [Concomitant]
     Dosage: 33000 UL, QD
     Dates: start: 20030105
  7. TRIATEC [Concomitant]
     Indication: HYPERTENSION
     Dosage: 2.5 MG, QD
  8. LOXEN [Concomitant]
     Indication: HYPERTENSION
     Dosage: 50 MG, BID
  9. LASILIX [Concomitant]
     Indication: HYPERTENSION
     Dosage: 40 MG, QD
  10. ZOCOR [Concomitant]
     Indication: BLOOD CHOLESTEROL DECREASED
     Dosage: 40 MG, QD
  11. GLUCOPHAGE [Concomitant]
     Indication: DIABETES MELLITUS
     Dosage: 1000 MG, BID
     Route: 048
  12. HUMALOG [Concomitant]
     Dosage: 74 UL, UNK
  13. MIXTARD HUMAN 70/30 [Concomitant]
     Dosage: 44 UL, UNK
  14. DEXTROPROPOXIFEN [Concomitant]
  15. TRAMADOL HCL [Concomitant]
     Dosage: 100 MG, UNK
     Dates: start: 20030112
  16. DIANTALVIC [Concomitant]

REACTIONS (1)
  - DRUG INTERACTION [None]
